APPROVED DRUG PRODUCT: ONDANSETRON HYDROCHLORIDE
Active Ingredient: ONDANSETRON HYDROCHLORIDE
Strength: EQ 8MG BASE
Dosage Form/Route: TABLET;ORAL
Application: A076252 | Product #002
Applicant: TEVA PHARMACEUTICALS USA INC
Approved: Jun 25, 2007 | RLD: No | RS: No | Type: DISCN